FAERS Safety Report 5911643-8 (Version None)
Quarter: 2008Q4

REPORT INFORMATION
  Report Type: 
  Country: None (occurrence: None)
  Receive Date: 20081003
  Receipt Date: 20080927
  Transmission Date: 20090506
  Serious: Yes (Hospitalization)
  Sender: FDA-Public Use
  Company Number: D-08-0042

PATIENT
  Age: 86 Year
  Sex: Male

DRUGS (15)
  1. JANTOVEN [Suspect]
     Indication: ATRIAL FIBRILLATION
     Dosage: REFER TO NARRATIVE IN B.5
     Dates: start: 20070601
  2. CARDIZEM CD [Concomitant]
  3. FLOMAX [Concomitant]
  4. DIGOXIN [Concomitant]
  5. LISINOPRIL [Concomitant]
  6. LASIX [Concomitant]
  7. TYLENOL (CAPLET) [Concomitant]
  8. FLONASE [Concomitant]
  9. ALBUTEROL [Concomitant]
  10. ALBUTEROL NEBULIZATION [Concomitant]
  11. AMBIEN [Concomitant]
  12. OXYCODONE HCL [Concomitant]
  13. TRIAMCINOLONE [Concomitant]
  14. NITROSTAT [Concomitant]
  15. ASPIRIN [Concomitant]

REACTIONS (5)
  - DIARRHOEA [None]
  - INTERNATIONAL NORMALISED RATIO DECREASED [None]
  - INTERNATIONAL NORMALISED RATIO INCREASED [None]
  - LOWER GASTROINTESTINAL HAEMORRHAGE [None]
  - RECTAL HAEMORRHAGE [None]
